FAERS Safety Report 18092999 (Version 12)
Quarter: 2022Q3

REPORT INFORMATION
  Report Type: Spontaneous
  Country: IN (occurrence: IN)
  Receive Date: 20200730
  Receipt Date: 20220726
  Transmission Date: 20221027
  Serious: Yes (Other)
  Sender: FDA-Public Use
  Company Number: IN-PFIZER INC-2020285962

PATIENT
  Age: 57 Year
  Sex: Female

DRUGS (10)
  1. AROMASIN [Suspect]
     Active Substance: EXEMESTANE
     Dosage: 25 MG, ONCE A DAY
  2. PALBOCICLIB [Suspect]
     Active Substance: PALBOCICLIB
     Indication: Breast cancer metastatic
     Dosage: 125 MG, CYCLIC (ONCE A DAY, X21 DAYS, ONE WEEK GAP)
     Route: 048
     Dates: start: 20190731
  3. PALBOCICLIB [Suspect]
     Active Substance: PALBOCICLIB
     Dosage: 125 MG, ONCE A DAY
     Route: 048
     Dates: start: 20190925
  4. PALBOCICLIB [Suspect]
     Active Substance: PALBOCICLIB
     Dosage: 125 MG, ONCE A DAY
     Route: 048
     Dates: start: 20200212
  5. PALBOCICLIB [Suspect]
     Active Substance: PALBOCICLIB
     Dosage: 125 MG, ONCE A DAY
     Route: 048
     Dates: start: 20210201
  6. PALBOCICLIB [Suspect]
     Active Substance: PALBOCICLIB
     Dosage: 125 MG, ONCE A DAY
     Route: 048
     Dates: start: 20210616
  7. FULVESTRANT [Concomitant]
     Active Substance: FULVESTRANT
     Dosage: 500 MG, 2X/WEEK (2 WEEKLY)
     Dates: start: 20190902, end: 20191001
  8. CLOPAM [Concomitant]
     Dosage: UNK, 1X/DAY (0.5 AT BEDTIME )
  9. BECOZINC G [Concomitant]
     Dosage: 1 DF, 1X/DAY
  10. DICLOPAMOL [Concomitant]
     Dosage: UNK, 1X/DAY FOR ONE MONTH (0.5HS X 1MTH)

REACTIONS (5)
  - White blood cell count decreased [Not Recovered/Not Resolved]
  - Haemoglobin decreased [Not Recovered/Not Resolved]
  - Neutrophil count decreased [Not Recovered/Not Resolved]
  - Procalcitonin increased [Unknown]
  - Platelet count decreased [Unknown]

NARRATIVE: CASE EVENT DATE: 20200110
